FAERS Safety Report 7558973-4 (Version None)
Quarter: 2011Q2

REPORT INFORMATION
  Report Type: 
  Country: None (occurrence: None)
  Receive Date: 20110621
  Receipt Date: 20110610
  Transmission Date: 20111010
  Serious: Yes (Death)
  Sender: FDA-Public Use
  Company Number: IE-AMGEN-IRLSP2011030103

PATIENT
  Sex: Male

DRUGS (10)
  1. LERCANIDIPINE [Concomitant]
  2. LIPITOR [Concomitant]
  3. FUROSEMIDE [Concomitant]
  4. CARDURA [Concomitant]
  5. APROVEL [Concomitant]
  6. ONE ALPHA [Concomitant]
  7. ZANTAC [Concomitant]
  8. ARANESP [Suspect]
     Indication: RENAL FAILURE CHRONIC
     Dosage: 20 A?G, Q2WK
     Route: 058
  9. CALCICHEW [Concomitant]
  10. CARDICOR [Concomitant]

REACTIONS (1)
  - DEATH [None]
